FAERS Safety Report 7142267-5 (Version None)
Quarter: 2010Q4

REPORT INFORMATION
  Report Type: 
  Country: None (occurrence: None)
  Receive Date: 20101203
  Receipt Date: 20101203
  Transmission Date: 20110411
  Serious: Yes (Life-Threatening, Hospitalization)
  Sender: FDA-Public Use
  Company Number: None

PATIENT
  Age: 76 Year
  Sex: Female
  Weight: 54.4316 kg

DRUGS (1)
  1. LISINOPRIL [Suspect]
     Dosage: 10 MG NI PO YEARS
     Route: 048

REACTIONS (2)
  - ANGIOEDEMA [None]
  - DYSPNOEA [None]
